FAERS Safety Report 13345237 (Version 1)
Quarter: 2017Q1

REPORT INFORMATION
  Report Type: Spontaneous
  Country: US (occurrence: US)
  Receive Date: 20170316
  Receipt Date: 20170316
  Transmission Date: 20170428
  Serious: Yes (Other)
  Sender: FDA-Public Use
  Company Number: None

PATIENT
  Age: 78 Year
  Sex: Female
  Weight: 51.75 kg

DRUGS (7)
  1. D [Concomitant]
  2. SCHIFF MOVE FREE [Concomitant]
     Active Substance: CHONDROITIN SULFATE A\GLUCOSAMINE
  3. VITAMINS [Concomitant]
     Active Substance: VITAMINS
  4. CALCIUM [Concomitant]
     Active Substance: CALCIUM
  5. MELOXICAM 7.5 [Suspect]
     Active Substance: MELOXICAM
     Indication: JOINT INJURY
     Dosage: ?          QUANTITY:1 TABLET(S);?
     Route: 048
     Dates: start: 20170223, end: 20170301
  6. VITAMIN B12 [Concomitant]
     Active Substance: CYANOCOBALAMIN
  7. MEGA RED [Concomitant]

REACTIONS (2)
  - Hypersensitivity [None]
  - Somnolence [None]

NARRATIVE: CASE EVENT DATE: 20170227
